FAERS Safety Report 14478952 (Version 6)
Quarter: 2020Q1

REPORT INFORMATION
  Report Type: Spontaneous
  Country: US (occurrence: US)
  Receive Date: 20180202
  Receipt Date: 20200205
  Transmission Date: 20200409
  Serious: No
  Sender: FDA-Public Use
  Company Number: US-PFIZER INC-2018043778

PATIENT
  Age: 79 Year
  Sex: Male
  Weight: 57.6 kg

DRUGS (2)
  1. RAPAMUNE [Suspect]
     Active Substance: SIROLIMUS
     Indication: LIVER TRANSPLANT
     Dosage: 1 MG, ALTERNATE DAY (QTY: 45 TABLET; REFILL: 3)
     Route: 048
     Dates: start: 20190424
  2. FENOFIBRATE. [Concomitant]
     Active Substance: FENOFIBRATE
     Indication: BLOOD CHOLESTEROL ABNORMAL
     Dosage: 54 MG, 1X/DAY
     Route: 048

REACTIONS (4)
  - Off label use [Unknown]
  - Sinusitis [Unknown]
  - Product use in unapproved indication [Unknown]
  - Malaise [Unknown]
